FAERS Safety Report 18248002 (Version 1)
Quarter: 2020Q3

REPORT INFORMATION
  Report Type: Spontaneous
  Country: US (occurrence: US)
  Receive Date: 20200909
  Receipt Date: 20200909
  Transmission Date: 20201103
  Serious: No
  Sender: FDA-Public Use
  Company Number: US-PERRIGO-20US008515

PATIENT
  Age: 53 Year
  Sex: Female
  Weight: 75.74 kg

DRUGS (2)
  1. ALBUTEROL SULFATE. [Suspect]
     Active Substance: ALBUTEROL SULFATE
     Dosage: UNKNOWN, PRN
     Route: 055
     Dates: start: 20200520, end: 20200531
  2. ALBUTEROL SULFATE. [Suspect]
     Active Substance: ALBUTEROL SULFATE
     Indication: ASTHMA
     Dosage: 90 MCG, PRN
     Route: 055
     Dates: start: 20200520, end: 20200531

REACTIONS (5)
  - Chest discomfort [Recovered/Resolved]
  - Stomatitis [Recovered/Resolved]
  - Device delivery system issue [Recovered/Resolved]
  - Oral discomfort [Recovered/Resolved]
  - Drug ineffective [Unknown]

NARRATIVE: CASE EVENT DATE: 202005
